FAERS Safety Report 5881142-0 (Version None)
Quarter: 2008Q3

REPORT INFORMATION
  Report Type: 
  Country: None (occurrence: None)
  Receive Date: 20080910
  Receipt Date: 20080829
  Transmission Date: 20090109
  Serious: Yes (Life-Threatening, Hospitalization)
  Sender: FDA-Public Use
  Company Number: 94951

PATIENT
  Age: 3 Month
  Sex: Male

DRUGS (2)
  1. ACETAMINOPHEN EXTENDED RELEASE TABLETS /650 MG [Suspect]
     Dosage: 100 MG/KG/DAY/ ORAL
     Route: 048
  2. ANESTHETIC [Concomitant]

REACTIONS (3)
  - HEPATIC NECROSIS [None]
  - LIVER INJURY [None]
  - OVERDOSE [None]
